FAERS Safety Report 4871905-2 (Version None)
Quarter: 2006Q1

REPORT INFORMATION
  Report Type: 
  Country: None (occurrence: None)
  Receive Date: 20060104
  Receipt Date: 20051025
  Transmission Date: 20060701
  Serious: Yes (Hospitalization)
  Sender: FDA-Public Use
  Company Number: PHHO2005JP16900

PATIENT
  Age: 77 Year
  Sex: Female

DRUGS (7)
  1. LOCHOL [Suspect]
     Indication: HYPERCHOLESTEROLAEMIA
     Dosage: 30 MG, QD
     Route: 048
     Dates: start: 20000801, end: 20030101
  2. LOCHOL [Suspect]
     Dosage: 30 MG, QD
     Route: 048
     Dates: start: 20030101, end: 20050712
  3. MERISLON [Suspect]
     Indication: DIZZINESS
     Dosage: 18MG, 12MG
     Route: 048
     Dates: start: 20031021
  4. CEPHADOL [Suspect]
     Indication: DIZZINESS
     Dosage: 75MG, 50MG
     Route: 048
     Dates: start: 20031021
  5. ASPIRIN [Suspect]
     Indication: DIZZINESS
     Dosage: 100MG
     Route: 048
     Dates: start: 20031028
  6. CEROCRAL [Concomitant]
     Indication: DIZZINESS
     Dates: start: 20011020, end: 20031028
  7. SEDIEL [Concomitant]
     Indication: ANXIETY DISORDER
     Dates: start: 20020226, end: 20050712

REACTIONS (2)
  - DIZZINESS [None]
  - TRANSIENT ISCHAEMIC ATTACK [None]
